FAERS Safety Report 11628230 (Version 1)
Quarter: 2015Q4

REPORT INFORMATION
  Report Type: Spontaneous
  Country: IT (occurrence: IT)
  Receive Date: 20151014
  Receipt Date: 20151014
  Transmission Date: 20160304
  Serious: Yes (Hospitalization)
  Sender: FDA-Public Use
  Company Number: IT-ACTAVIS-2015-21770

PATIENT
  Age: 57 Year
  Sex: Female

DRUGS (2)
  1. OXALIPLATIN (UNKNOWN) [Suspect]
     Active Substance: OXALIPLATIN
     Indication: COLON NEOPLASM
     Dosage: 205 MG, CYCLICAL
     Route: 042
     Dates: start: 20150806, end: 20150806
  2. CAPECITABINE (UNKNOWN) [Suspect]
     Active Substance: CAPECITABINE
     Indication: COLON NEOPLASM
     Dosage: 3150 MG, DAILY
     Route: 048
     Dates: start: 20150806, end: 20150819

REACTIONS (3)
  - Stomatitis [Recovering/Resolving]
  - Diarrhoea [Recovering/Resolving]
  - Pyrexia [Recovering/Resolving]

NARRATIVE: CASE EVENT DATE: 20150819
